FAERS Safety Report 9716536 (Version 2)
Quarter: 2013Q4

REPORT INFORMATION
  Report Type: Spontaneous
  Country: US (occurrence: US)
  Receive Date: 20131127
  Receipt Date: 20131231
  Transmission Date: 20140711
  Serious: Yes (Hospitalization)
  Sender: FDA-Public Use
  Company Number: US-PFIZER INC-2013334320

PATIENT
  Age: 75 Year
  Sex: Female

DRUGS (2)
  1. XALKORI [Suspect]
     Indication: NON-SMALL CELL LUNG CANCER
     Dosage: 500 MG, UNK
     Dates: start: 20120926
  2. XALKORI [Suspect]
     Dosage: UNK

REACTIONS (1)
  - Pneumonia [Unknown]
